FAERS Safety Report 10550865 (Version 1)
Quarter: 2014Q4

REPORT INFORMATION
  Report Type: Spontaneous
  Country: US (occurrence: None)
  Receive Date: 20141028
  Receipt Date: 20141028
  Transmission Date: 20150529
  Serious: Yes (Other)
  Sender: FDA-Public Use
  Company Number: None

PATIENT
  Age: 33 Year
  Sex: Female
  Weight: 59.88 kg

DRUGS (1)
  1. CYMBALTA [Suspect]
     Active Substance: DULOXETINE HYDROCHLORIDE
     Indication: MAJOR DEPRESSION
     Dosage: 60 MG ONCE DAILY AT BEDTIME TAKEN BY MOUTH
     Route: 048
     Dates: start: 20100622, end: 20141015

REACTIONS (16)
  - Dizziness [None]
  - Abdominal pain [None]
  - Palpitations [None]
  - Abdominal discomfort [None]
  - Hot flush [None]
  - Paraesthesia oral [None]
  - Confusional state [None]
  - Nausea [None]
  - Withdrawal syndrome [None]
  - Chills [None]
  - Hypoaesthesia oral [None]
  - Headache [None]
  - Anxiety [None]
  - Diarrhoea [None]
  - Tachyphrenia [None]
  - Fatigue [None]
